FAERS Safety Report 10586868 (Version 1)
Quarter: 2014Q4

REPORT INFORMATION
  Report Type: Spontaneous
  Country: US (occurrence: US)
  Receive Date: 20141117
  Receipt Date: 20141117
  Transmission Date: 20150529
  Serious: No
  Sender: FDA-Public Use
  Company Number: US-TARO-2014P1002976

PATIENT
  Age: 54 Year
  Sex: Female
  Weight: 79.37 kg

DRUGS (1)
  1. TRIAMCINOLONE ACETONIDE DENTAL PASTE USP 0.1% [Suspect]
     Active Substance: TRIAMCINOLONE ACETONIDE
     Dosage: QID
     Dates: start: 20140402

REACTIONS (2)
  - Lip disorder [Not Recovered/Not Resolved]
  - Foaming at mouth [Not Recovered/Not Resolved]

NARRATIVE: CASE EVENT DATE: 20140402
